FAERS Safety Report 4336409-4 (Version None)
Quarter: 2004Q2

REPORT INFORMATION
  Report Type: 
  Country: None (occurrence: None)
  Receive Date: 20040407
  Receipt Date: 20040331
  Transmission Date: 20050107
  Serious: Yes (Disabling, Congenital Anomaly)
  Sender: FDA-Public Use
  Company Number: 2003-07-0605

PATIENT
  Age: 1 Day

DRUGS (1)
  1. GENTAMICIN [Suspect]
     Indication: APPENDICITIS
     Dosage: UNKNOWN INTRAVENOUS (2 DOSES)
     Route: 042

REACTIONS (5)
  - COMPLICATIONS OF MATERNAL EXPOSURE TO THERAPEUTIC DRUGS [None]
  - CONGENITAL NEUROLOGICAL DISORDER [None]
  - DEAFNESS CONGENITAL [None]
  - DRUG EXPOSURE DURING PREGNANCY [None]
  - IIIRD NERVE DISORDER [None]
